FAERS Safety Report 18164948 (Version 2)
Quarter: 2020Q3

REPORT INFORMATION
  Report Type: Other
  Country: GB (occurrence: GB)
  Receive Date: 20200819
  Receipt Date: 20200825
  Transmission Date: 20201103
  Serious: Yes (Other)
  Sender: FDA-Public Use
  Company Number: GB-IPCA LABORATORIES LIMITED-IPC-2020-GB-002747

PATIENT

DRUGS (2)
  1. CELESTIAL SLEEPYTIME [Interacting]
     Active Substance: HERBALS
     Indication: SLEEP DISORDER
     Dosage: 1 DOSAGE FORM
     Route: 048
     Dates: start: 20200727, end: 20200728
  2. HYDROXYCHLOROQUINE [Suspect]
     Active Substance: HYDROXYCHLOROQUINE
     Indication: SYSTEMIC LUPUS ERYTHEMATOSUS
     Dosage: UNK
     Route: 065

REACTIONS (8)
  - Arthralgia [Recovering/Resolving]
  - Headache [Recovering/Resolving]
  - Herbal interaction [Unknown]
  - Musculoskeletal pain [Unknown]
  - Seizure [Recovering/Resolving]
  - Hyperhidrosis [Unknown]
  - Somnolence [Unknown]
  - Disorientation [Unknown]

NARRATIVE: CASE EVENT DATE: 20200727
